FAERS Safety Report 8178170-1 (Version None)
Quarter: 2012Q1

REPORT INFORMATION
  Report Type: 
  Country: None (occurrence: None)
  Receive Date: 20120301
  Receipt Date: 20120227
  Transmission Date: 20120608
  Serious: Yes (Death, Other)
  Sender: FDA-Public Use
  Company Number: CHPA2012US003815

PATIENT
  Age: 50 Year
  Sex: Female

DRUGS (8)
  1. MORPHINE [Suspect]
     Dosage: UNK, UNK
     Route: 048
  2. FLUOXETINE [Suspect]
     Dosage: UNK, UNK
     Route: 048
  3. ACETAMINOPHEN [Suspect]
     Dosage: UNK, UNK
     Route: 048
  4. ESZOPICLONE [Suspect]
     Dosage: UNK, UNK
     Route: 048
  5. NAPROXEN [Suspect]
     Dosage: UNK, UNK
     Route: 048
  6. IBUPROFEN [Suspect]
     Dosage: UNK, UNK
     Route: 048
  7. ALPRAZOLAM [Suspect]
     Dosage: UNK, UNK
     Route: 048
  8. OXYCODONE HCL [Suspect]
     Dosage: UNK, UNK
     Route: 048

REACTIONS (2)
  - CARDIO-RESPIRATORY ARREST [None]
  - COMPLETED SUICIDE [None]
